FAERS Safety Report 9171299 (Version 2)
Quarter: 2013Q2

REPORT INFORMATION
  Report Type: Spontaneous
  Country: CN (occurrence: CN)
  Receive Date: 20130319
  Receipt Date: 20130417
  Transmission Date: 20140414
  Serious: Yes (Hospitalization)
  Sender: FDA-Public Use
  Company Number: CN-PFIZER INC-2013089264

PATIENT
  Age: 67 Year
  Sex: Female

DRUGS (2)
  1. CORDARONE [Suspect]
     Indication: ATRIAL FIBRILLATION
     Dosage: 0.2G/ 0.15G QD (IN WINTER)
     Route: 048
     Dates: start: 201109
  2. CORDARONE [Suspect]
     Dosage: 0.1G QD (IN SPRING, SUMMER AND AUTUMN)
     Route: 048
     Dates: start: 201109

REACTIONS (1)
  - Oxygen saturation decreased [Not Recovered/Not Resolved]
